FAERS Safety Report 8528903-7 (Version None)
Quarter: 2012Q3

REPORT INFORMATION
  Report Type: 
  Country: None (occurrence: None)
  Receive Date: 20120723
  Receipt Date: 20120717
  Transmission Date: 20120928
  Serious: No
  Sender: FDA-Public Use
  Company Number: US-PFIZER INC-2012172892

PATIENT
  Sex: Female
  Weight: 53.061 kg

DRUGS (3)
  1. THYROID TAB [Concomitant]
     Indication: THYROID DISORDER
     Dosage: UNK
     Route: 048
  2. CELEXA [Concomitant]
     Indication: HYPOTHALAMO-PITUITARY DISORDER
     Dosage: 5 MG, DAILY
     Route: 048
  3. GENOTROPIN [Suspect]
     Indication: HYPOPITUITARISM
     Dosage: 0.2 MG, DAILY
     Dates: start: 20120713

REACTIONS (2)
  - DIZZINESS [None]
  - FATIGUE [None]
